FAERS Safety Report 9276161 (Version 3)
Quarter: 2013Q2

REPORT INFORMATION
  Report Type: Spontaneous
  Country: JP (occurrence: JP)
  Receive Date: 20130507
  Receipt Date: 20130625
  Transmission Date: 20140414
  Serious: Yes (Other)
  Sender: FDA-Public Use
  Company Number: PHHY2013JP039607

PATIENT
  Age: 85 Year
  Sex: Female
  Weight: 60 kg

DRUGS (6)
  1. LOCHOL [Suspect]
     Indication: HYPERLIPIDAEMIA
     Dosage: 30 MG, DAILY
     Route: 048
     Dates: start: 20090302, end: 20130507
  2. CILNIDIPINE [Concomitant]
     Route: 048
  3. ZYLORIC [Concomitant]
     Dosage: 1 DF (1 TABLET DAILY)
  4. ZYLORIC [Concomitant]
     Dosage: 2 DF (2 TABLET DAILY)
  5. PACETCOOL [Concomitant]
     Indication: PNEUMONIA
     Route: 042
  6. MINOMYCIN [Concomitant]
     Indication: PNEUMONIA
     Route: 042

REACTIONS (3)
  - Blood creatine phosphokinase increased [Recovered/Resolved]
  - Myositis [Unknown]
  - Nasopharyngitis [Unknown]
